FAERS Safety Report 11390893 (Version 1)
Quarter: 2015Q3

REPORT INFORMATION
  Report Type: Spontaneous
  Country: GB (occurrence: GB)
  Receive Date: 20150818
  Receipt Date: 20150818
  Transmission Date: 20151125
  Serious: Yes (Other)
  Sender: FDA-Public Use
  Company Number: GB-TEVA-585549ACC

PATIENT
  Sex: Female
  Weight: 120.65 kg

DRUGS (11)
  1. SOLIFENACIN [Concomitant]
     Active Substance: SOLIFENACIN
  2. LANSOPRAZOLE. [Concomitant]
     Active Substance: LANSOPRAZOLE
  3. LYRICA [Concomitant]
     Active Substance: PREGABALIN
  4. AMITRIPTYLINE [Concomitant]
     Active Substance: AMITRIPTYLINE
  5. HYDROXYCHLOROQUINE [Concomitant]
     Active Substance: HYDROXYCHLOROQUINE
  6. MAROL PROLONGED RELEASE [Concomitant]
  7. SALBUTAMOL [Concomitant]
     Active Substance: ALBUTEROL
  8. FLUTICASONE PROPIONATE. [Concomitant]
     Active Substance: FLUTICASONE PROPIONATE
  9. SIMVASTATIN. [Suspect]
     Active Substance: SIMVASTATIN
     Indication: VASCULAR CALCIFICATION
     Route: 048
     Dates: start: 201504, end: 201504
  10. LEVOTHYROXINE SODIUM. [Concomitant]
     Active Substance: LEVOTHYROXINE SODIUM
  11. PREGABALIN. [Concomitant]
     Active Substance: PREGABALIN

REACTIONS (4)
  - Visual impairment [Recovered/Resolved]
  - Fatigue [Recovered/Resolved]
  - Dyspnoea [Recovered/Resolved]
  - Myalgia [Recovered/Resolved]

NARRATIVE: CASE EVENT DATE: 201504
